FAERS Safety Report 19381553 (Version 2)
Quarter: 2021Q2

REPORT INFORMATION
  Report Type: Spontaneous
  Country: NL (occurrence: NL)
  Receive Date: 20210607
  Receipt Date: 20210609
  Transmission Date: 20210717
  Serious: Yes (Death, Hospitalization, Other)
  Sender: FDA-Public Use
  Company Number: NL-009507513-2106NLD001560

PATIENT
  Age: 72 Year
  Sex: Female

DRUGS (1)
  1. PEMBROLIZUMAB. [Suspect]
     Active Substance: PEMBROLIZUMAB
     Indication: LUNG ADENOCARCINOMA
     Dosage: UNK

REACTIONS (5)
  - Pericardial effusion [Fatal]
  - General physical health deterioration [Unknown]
  - Malaise [Unknown]
  - Pyrexia [Unknown]
  - Dyspnoea [Unknown]
